FAERS Safety Report 8984243 (Version 1)
Quarter: 2012Q4

REPORT INFORMATION
  Report Type: 
  Country: BR (occurrence: BR)
  Receive Date: 20121226
  Receipt Date: 20121226
  Transmission Date: 20130627
  Serious: Yes (Other)
  Sender: FDA-Public Use
  Company Number: BR-JNJFOC-20121209377

PATIENT
  Age: 23 Year
  Sex: Female
  Weight: 82 kg

DRUGS (11)
  1. REMICADE [Suspect]
     Indication: JUVENILE ARTHRITIS
     Route: 042
     Dates: start: 20120815
  2. REMICADE [Suspect]
     Indication: JUVENILE ARTHRITIS
     Dosage: 3rd infusion
     Route: 042
     Dates: start: 20121130, end: 20121130
  3. PREDNISONE [Concomitant]
     Route: 048
  4. LEFLUNOMIDE [Concomitant]
     Indication: RHEUMATOID ARTHRITIS
     Route: 048
  5. CALCIUM CARBONATE [Concomitant]
     Route: 048
  6. OMEPRAZOLE [Concomitant]
     Route: 048
  7. SULFASALAZINE [Concomitant]
     Indication: RHEUMATOID ARTHRITIS
     Route: 048
  8. VITAMIN D3 [Concomitant]
     Dosage: 200IU, 5 drops
     Route: 048
  9. AMITRIPTYLINE [Concomitant]
     Route: 048
  10. NAPROXEN [Concomitant]
     Route: 048
  11. DIPHENHYDRAMINE [Concomitant]
     Indication: PREMEDICATION
     Route: 065

REACTIONS (4)
  - Dyspnoea [Recovered/Resolved]
  - Oxygen saturation decreased [Recovered/Resolved]
  - Rash [Recovered/Resolved]
  - Infusion related reaction [Recovered/Resolved]
